FAERS Safety Report 18260427 (Version 2)
Quarter: 2020Q3

REPORT INFORMATION
  Report Type: Spontaneous
  Country: US (occurrence: US)
  Receive Date: 20200914
  Receipt Date: 20200926
  Transmission Date: 20201103
  Serious: No
  Sender: FDA-Public Use
  Company Number: US-TEVA-2020-US-1826617

PATIENT

DRUGS (1)
  1. METRONIDAZOLE TEVA [Suspect]
     Active Substance: METRONIDAZOLE
     Indication: GASTROINTESTINAL INFECTION
     Route: 065
     Dates: start: 20200811, end: 20200812

REACTIONS (2)
  - Swelling face [Recovering/Resolving]
  - Eye swelling [Recovering/Resolving]

NARRATIVE: CASE EVENT DATE: 20200812
